APPROVED DRUG PRODUCT: METHADONE HYDROCHLORIDE
Active Ingredient: METHADONE HYDROCHLORIDE
Strength: 5MG/5ML
Dosage Form/Route: SOLUTION;ORAL
Application: A207537 | Product #001 | TE Code: AA
Applicant: SPECGX LLC
Approved: Oct 2, 2019 | RLD: No | RS: No | Type: RX